FAERS Safety Report 6895146-2 (Version None)
Quarter: 2010Q3

REPORT INFORMATION
  Report Type: 
  Country: None (occurrence: None)
  Receive Date: 20100802
  Receipt Date: 20100723
  Transmission Date: 20110219
  Serious: Yes (Hospitalization)
  Sender: FDA-Public Use
  Company Number: JP-ASTRAZENECA-2010SE26375

PATIENT
  Age: 73 Year
  Sex: Male

DRUGS (8)
  1. OMEPRAL [Suspect]
     Route: 048
  2. SELOKEN [Concomitant]
     Route: 048
  3. MAGMITT [Concomitant]
     Route: 048
  4. LUPRAC [Concomitant]
     Route: 048
  5. RENIVACE [Concomitant]
     Route: 048
  6. CRESTOR [Concomitant]
     Route: 048
  7. ASPIRIN [Concomitant]
     Route: 048
  8. HARNAL [Concomitant]
     Route: 048

REACTIONS (1)
  - COLITIS COLLAGENOUS [None]
